FAERS Safety Report 12575180 (Version 1)
Quarter: 2016Q3

REPORT INFORMATION
  Report Type: Spontaneous
  Country: US (occurrence: US)
  Receive Date: 20160720
  Receipt Date: 20160720
  Transmission Date: 20161109
  Serious: No
  Sender: FDA-Public Use
  Company Number: US-ASTELLAS-2016US001960

PATIENT
  Sex: Female
  Weight: 63 kg

DRUGS (4)
  1. SYNTHROID [Concomitant]
     Active Substance: LEVOTHYROXINE SODIUM
     Indication: HYPOTHYROIDISM
     Dosage: 1 DF, ONCE DAILY (IN MORNING)
     Route: 048
     Dates: start: 1987
  2. VESICARE [Suspect]
     Active Substance: SOLIFENACIN SUCCINATE
     Indication: INCONTINENCE
     Route: 048
     Dates: start: 201506
  3. LORAZEPAM. [Concomitant]
     Active Substance: LORAZEPAM
     Indication: SLEEP DISORDER
     Dosage: ONCE DAILY, 1 OR 2 TABLETS AT BEDTIME
     Route: 065
     Dates: start: 2015
  4. OCUVITE [Concomitant]
     Active Substance: VITAMINS
     Indication: EYE DISORDER
     Dosage: 1 SOFT GEL, ONCE DAILY
     Route: 048
     Dates: start: 201512

REACTIONS (1)
  - Drug ineffective [Unknown]
